FAERS Safety Report 10233330 (Version 1)
Quarter: 2014Q2

REPORT INFORMATION
  Report Type: Spontaneous
  Country: US (occurrence: US)
  Receive Date: 20140612
  Receipt Date: 20140612
  Transmission Date: 20141212
  Serious: Yes (Hospitalization)
  Sender: FDA-Public Use
  Company Number: US-PFIZER INC-2014157508

PATIENT
  Age: 71 Year
  Sex: Female
  Weight: 68.03 kg

DRUGS (3)
  1. INLYTA [Suspect]
     Indication: RENAL CELL CARCINOMA
     Dosage: 5 MG, 2X/DAY
     Dates: start: 2014, end: 2014
  2. DUTOPROLOL [Concomitant]
     Indication: HYPERTENSION
     Dosage: HYDROCHLOROTHIAZIDE 12.5 MG/METOPROLOL SUCCINATE 100 MG, DAILY
  3. TOPROL [Concomitant]
     Indication: HYPERTENSION
     Dosage: UNK

REACTIONS (4)
  - Pneumonia [Unknown]
  - Haemoptysis [Unknown]
  - Disease progression [Unknown]
  - Renal cell carcinoma [Unknown]
